FAERS Safety Report 18425749 (Version 1)
Quarter: 2020Q4

REPORT INFORMATION
  Report Type: Spontaneous
  Country: US (occurrence: US)
  Receive Date: 20201026
  Receipt Date: 20201026
  Transmission Date: 20210114
  Serious: No
  Sender: FDA-Public Use
  Company Number: US-MYLANLABS-2020M1087842

PATIENT
  Sex: Female
  Weight: 86 kg

DRUGS (1)
  1. ESTRADIOL VAGINAL CREAM USP [Suspect]
     Active Substance: ESTRADIOL
     Indication: VULVOVAGINAL DRYNESS
     Dosage: 0.01 PERCENT, QD
     Route: 067

REACTIONS (3)
  - Product quality issue [Not Recovered/Not Resolved]
  - Back pain [Not Recovered/Not Resolved]
  - Product packaging issue [Not Recovered/Not Resolved]
